FAERS Safety Report 4606804-4 (Version None)
Quarter: 2005Q1

REPORT INFORMATION
  Report Type: 
  Country: None (occurrence: None)
  Receive Date: 20050310
  Receipt Date: 20050303
  Transmission Date: 20050727
  Serious: Yes (Life-Threatening, Hospitalization)
  Sender: FDA-Public Use
  Company Number: 163-20785-03060879

PATIENT
  Age: 17 Year
  Sex: Male

DRUGS (7)
  1. THALOMID [Suspect]
     Indication: OSTEOLYSIS
     Dosage: SEE IMAGE
     Route: 048
     Dates: start: 20000301, end: 20020901
  2. THALOMID [Suspect]
     Indication: OSTEOLYSIS
     Dosage: SEE IMAGE
     Route: 048
     Dates: start: 20020901, end: 20030509
  3. BACLOFEN [Concomitant]
  4. OXYBUTYNIN CHLORIDE [Concomitant]
  5. FOSAMAX [Concomitant]
  6. FLORINEF [Concomitant]
  7. TESTOSTERONE [Concomitant]

REACTIONS (7)
  - BRAIN STEM SYNDROME [None]
  - CEREBROVASCULAR ACCIDENT [None]
  - DISEASE PROGRESSION [None]
  - LOSS OF CONSCIOUSNESS [None]
  - PNEUMONIA [None]
  - RESPIRATORY ARREST [None]
  - SPINAL DISORDER [None]
